FAERS Safety Report 9361977 (Version 2)
Quarter: 2013Q3

REPORT INFORMATION
  Report Type: Spontaneous
  Country: US (occurrence: US)
  Receive Date: 20130621
  Receipt Date: 20130724
  Transmission Date: 20140515
  Serious: Yes (Life-Threatening, Hospitalization, Disabling, Other)
  Sender: FDA-Public Use
  Company Number: US-009507513-1306USA009169

PATIENT
  Age: 48 Year
  Sex: Female
  Weight: 59.41 kg

DRUGS (3)
  1. JANUMET XR [Suspect]
     Indication: TYPE 2 DIABETES MELLITUS
     Dosage: 100/1000 TABLET DAILY
     Route: 048
     Dates: start: 20120509, end: 20130612
  2. JANUVIA [Suspect]
     Dosage: UNK
     Route: 048
     Dates: start: 2011
  3. LEVOTHYROXINE SODIUM [Concomitant]
     Dosage: UNK
     Route: 048

REACTIONS (1)
  - Pancreatitis [Recovered/Resolved]
